FAERS Safety Report 6396782-2 (Version None)
Quarter: 2009Q4

REPORT INFORMATION
  Report Type: 
  Country: None (occurrence: None)
  Receive Date: 20091012
  Receipt Date: 20090818
  Transmission Date: 20100525
  Serious: No
  Sender: FDA-Public Use
  Company Number: US-ASTRAZENECA-2009SE08704

PATIENT
  Age: 80 Year
  Sex: Female
  Weight: 59.9 kg

DRUGS (8)
  1. SYMBICORT [Suspect]
     Dosage: 640 UG BID
     Route: 055
     Dates: start: 20090808
  2. AMLODIPINE [Concomitant]
  3. SIMVASTATIN [Concomitant]
  4. COUMADIN [Concomitant]
  5. FEXOFENADINE [Concomitant]
  6. NASONEX [Concomitant]
  7. ASTEPRO [Concomitant]
  8. VITAMINS [Concomitant]
     Route: 065

REACTIONS (1)
  - OEDEMA PERIPHERAL [None]
